FAERS Safety Report 8584375-8 (Version None)
Quarter: 2012Q3

REPORT INFORMATION
  Report Type: 
  Country: None (occurrence: None)
  Receive Date: 20120810
  Receipt Date: 20120803
  Transmission Date: 20120928
  Serious: No
  Sender: FDA-Public Use
  Company Number: 2007BI025637

PATIENT
  Age: 58 Year
  Sex: Female

DRUGS (3)
  1. COPAXONE [Concomitant]
  2. BETASERON [Concomitant]
  3. TYSABRI [Suspect]
     Indication: MULTIPLE SCLEROSIS
     Route: 042
     Dates: start: 20070731, end: 20071023

REACTIONS (8)
  - DRUG INTOLERANCE [None]
  - GAIT DISTURBANCE [None]
  - COORDINATION ABNORMAL [None]
  - CHILLS [None]
  - ABDOMINAL PAIN UPPER [None]
  - NONSPECIFIC REACTION [None]
  - ATAXIA [None]
  - DRUG SPECIFIC ANTIBODY PRESENT [None]
